FAERS Safety Report 5257167-5 (Version None)
Quarter: 2007Q1

REPORT INFORMATION
  Report Type: 
  Country: None (occurrence: None)
  Receive Date: 20070307
  Receipt Date: 20070227
  Transmission Date: 20070707
  Serious: Yes (Hospitalization)
  Sender: FDA-Public Use
  Company Number: FR-ROCHE-484963

PATIENT
  Age: 69 Year
  Sex: Male
  Weight: 62 kg

DRUGS (3)
  1. GANCICLOVIR [Suspect]
     Indication: GLIOMA
     Route: 042
     Dates: start: 20070129, end: 20070211
  2. CEREPRO [Suspect]
     Indication: GLIOMA
     Route: 018
     Dates: start: 20070124, end: 20070124
  3. SOLUPRED [Concomitant]
     Dates: start: 20070202

REACTIONS (3)
  - COGNITIVE DISORDER [None]
  - HYPERTHERMIA [None]
  - HYPOPHOSPHATAEMIA [None]
